FAERS Safety Report 10210574 (Version 1)
Quarter: 2014Q2

REPORT INFORMATION
  Report Type: Spontaneous
  Country: US (occurrence: None)
  Receive Date: 20140529
  Receipt Date: 20140529
  Transmission Date: 20141212
  Serious: Yes (Hospitalization)
  Sender: FDA-Public Use
  Company Number: None

PATIENT
  Age: 41 Year
  Sex: Male
  Weight: 49.2 kg

DRUGS (2)
  1. MORPHINE [Suspect]
     Indication: PAIN
     Route: 048
     Dates: start: 20110312
  2. MORPHINE [Suspect]
     Route: 048
     Dates: start: 20110511

REACTIONS (5)
  - Somnolence [None]
  - General symptom [None]
  - Miosis [None]
  - Overdose [None]
  - Sedation [None]
